FAERS Safety Report 17751994 (Version 1)
Quarter: 2020Q2

REPORT INFORMATION
  Report Type: Spontaneous
  Country: IT (occurrence: IT)
  Receive Date: 20200506
  Receipt Date: 20200506
  Transmission Date: 20200714
  Serious: Yes (Other)
  Sender: FDA-Public Use
  Company Number: IT-TEVA-2020-IT-1229712

PATIENT
  Age: 69 Year
  Sex: Female

DRUGS (4)
  1. LANSOPRAZOLE. [Concomitant]
     Active Substance: LANSOPRAZOLE
  2. AMIODARONE [Suspect]
     Active Substance: AMIODARONE
     Indication: ATRIAL FIBRILLATION
     Dosage: 200 MILLIGRAM
     Route: 048
     Dates: start: 20160109, end: 20200414
  3. MESALAZINE [Concomitant]
     Active Substance: MESALAMINE
  4. LASITONE [Concomitant]
     Active Substance: FUROSEMIDE\SPIRONOLACTONE

REACTIONS (4)
  - Hyperthyroidism [Recovering/Resolving]
  - Weight decreased [Recovering/Resolving]
  - Asthenia [Recovering/Resolving]
  - Dyspepsia [Recovering/Resolving]

NARRATIVE: CASE EVENT DATE: 20200412
